FAERS Safety Report 9924395 (Version 4)
Quarter: 2014Q3

REPORT INFORMATION
  Report Type: Spontaneous
  Country: US (occurrence: None)
  Receive Date: 20140220
  Receipt Date: 20140922
  Transmission Date: 20150326
  Serious: Yes (Hospitalization)
  Sender: FDA-Public Use
  Company Number: US-000883

PATIENT
  Age: 53 Year
  Sex: Female
  Weight: 59.42 kg

DRUGS (7)
  1. CREON [Concomitant]
     Active Substance: PANCRELIPASE AMYLASE\PANCRELIPASE LIPASE\PANCRELIPASE PROTEASE
  2. PRIMPERAN [Concomitant]
     Active Substance: METOCLOPRAMIDE HYDROCHLORIDE
  3. GATTEX [Suspect]
     Active Substance: TEDUGLUTIDE\WATER
     Indication: SHORT-BOWEL SYNDROME
     Dosage: 0.33 ML, QD STREN/VOLUM: 0.33 ML/FREQU: ONCE A DAY SUBCUTANEOUS
     Route: 058
     Dates: start: 20131129
  4. REMICADE [Concomitant]
     Active Substance: INFLIXIMAB
  5. HYDROCHLOROTHIAZIDE W/TRIAMTERENE [Concomitant]
     Active Substance: HYDROCHLOROTHIAZIDE\TRIAMTERENE
  6. PARENTERAL NURTITION [Concomitant]
     Active Substance: AMINO ACIDS\DEXTROSE\ELECTROLYTES NOS
  7. BENADRYL [Concomitant]
     Active Substance: DIPHENHYDRAMINE HYDROCHLORIDE

REACTIONS (16)
  - Injury associated with device [None]
  - Death of relative [None]
  - Drug dose omission [None]
  - Vomiting [None]
  - Erythema [None]
  - Colitis [None]
  - Nervousness [None]
  - Abdominal pain upper [None]
  - Headache [None]
  - Peripheral swelling [None]
  - Dehydration [None]
  - Nausea [None]
  - Abdominal pain [None]
  - Intestinal obstruction [None]
  - Diarrhoea [None]
  - Injection site haemorrhage [None]

NARRATIVE: CASE EVENT DATE: 201311
